FAERS Safety Report 5426087-5 (Version None)
Quarter: 2007Q3

REPORT INFORMATION
  Report Type: 
  Country: None (occurrence: None)
  Receive Date: 20070823
  Receipt Date: 20070823
  Transmission Date: 20080115
  Serious: Yes (Life-Threatening, Hospitalization)
  Sender: FDA-Public Use
  Company Number: None

PATIENT
  Sex: Male
  Weight: 102 kg

DRUGS (18)
  1. BACTRIM [Suspect]
     Indication: PROPHYLAXIS
     Dosage: 80/400MG PO DAILY
     Route: 048
     Dates: start: 20070127, end: 20070130
  2. ACYCLOVIR [Suspect]
     Indication: PROPHYLAXIS
     Dosage: 800MG PO Q8HRS
     Route: 048
     Dates: start: 20070127, end: 20070130
  3. INSULIN [Concomitant]
  4. LANSOPROAZOLE [Concomitant]
  5. LEVOFLOXACIN [Concomitant]
  6. LORAZEPAM [Concomitant]
  7. FENTANYL [Concomitant]
  8. METRONIDAZOLE [Concomitant]
  9. MULTI-VITAMIN [Concomitant]
  10. NYSTATIN [Concomitant]
  11. OXYCODONE HCL AND ACETAMINOPHEN [Concomitant]
  12. PREDNISONE TAB [Concomitant]
  13. TACROLIMUS [Concomitant]
  14. ALBUMIN (HUMAN) [Concomitant]
  15. POTASSIUM CHLORIDE [Concomitant]
  16. NOREPINEPHRINE [Concomitant]
  17. PROPOFOL [Concomitant]
  18. VASOPRESSIN [Concomitant]

REACTIONS (8)
  - DIARRHOEA [None]
  - DYSPNOEA [None]
  - HYPOXIA [None]
  - PNEUMONIA [None]
  - PYREXIA [None]
  - RASH [None]
  - STEVENS-JOHNSON SYNDROME [None]
  - SUPRAVENTRICULAR TACHYCARDIA [None]
